FAERS Safety Report 26112288 (Version 1)
Quarter: 2025Q4

REPORT INFORMATION
  Report Type: Spontaneous
  Country: US (occurrence: US)
  Receive Date: 20251202
  Receipt Date: 20251202
  Transmission Date: 20260117
  Serious: No
  Sender: ELI LILLY AND COMPANY
  Company Number: US-ELI_LILLY_AND_COMPANY-US202511017984

PATIENT
  Age: 25 Year
  Sex: Female

DRUGS (8)
  1. ZEPBOUND [Suspect]
     Active Substance: TIRZEPATIDE
     Indication: Pyrexia
     Dosage: 2.5 MG, UNKNOWN
     Route: 030
     Dates: start: 20251105, end: 20251105
  2. ZEPBOUND [Suspect]
     Active Substance: TIRZEPATIDE
     Indication: Pyrexia
     Dosage: 2.5 MG, UNKNOWN
     Route: 030
     Dates: start: 20251105, end: 20251105
  3. ZEPBOUND [Suspect]
     Active Substance: TIRZEPATIDE
     Indication: Gastrointestinal disorder
  4. ZEPBOUND [Suspect]
     Active Substance: TIRZEPATIDE
     Indication: Gastrointestinal disorder
  5. ABILIFY [Concomitant]
     Active Substance: ARIPIPRAZOLE
     Indication: Product used for unknown indication
     Dosage: UNK UNK, UNKNOWN
     Route: 065
  6. METFORMIN [Concomitant]
     Active Substance: METFORMIN HYDROCHLORIDE
     Indication: Product used for unknown indication
     Dosage: UNK UNK, UNKNOWN
     Route: 065
  7. METOPROLOL [Concomitant]
     Active Substance: METOPROLOL
     Indication: Product used for unknown indication
     Dosage: UNK UNK, UNKNOWN
     Route: 065
  8. SPIRONOLACTONE [Concomitant]
     Active Substance: SPIRONOLACTONE
     Indication: Product used for unknown indication
     Dosage: UNK UNK, UNKNOWN
     Route: 065

REACTIONS (5)
  - Incorrect route of product administration [Unknown]
  - Off label use [Unknown]
  - Pyrexia [Recovering/Resolving]
  - Diarrhoea [Recovering/Resolving]
  - Vomiting [Recovering/Resolving]

NARRATIVE: CASE EVENT DATE: 20251105
